FAERS Safety Report 19227490 (Version 3)
Quarter: 2021Q2

REPORT INFORMATION
  Report Type: Spontaneous
  Country: US (occurrence: US)
  Receive Date: 20210507
  Receipt Date: 20210528
  Transmission Date: 20210717
  Serious: No
  Sender: FDA-Public Use
  Company Number: US-GLAXOSMITHKLINE-US2021094709

PATIENT
  Sex: Female

DRUGS (2)
  1. ZEJULA [Suspect]
     Active Substance: NIRAPARIB
     Indication: MALIGNANT PERITONEAL NEOPLASM
     Dosage: 200 MG, QD
     Route: 048
     Dates: start: 20210419
  2. ZEJULA [Suspect]
     Active Substance: NIRAPARIB
     Dosage: 200 MG, QD
     Dates: end: 20210525

REACTIONS (7)
  - Protein urine present [Unknown]
  - Constipation [Unknown]
  - Epistaxis [Unknown]
  - Condition aggravated [Unknown]
  - Full blood count decreased [Unknown]
  - Dysphagia [Unknown]
  - Oropharyngeal discomfort [Unknown]
